FAERS Safety Report 13330371 (Version 1)
Quarter: 2017Q1

REPORT INFORMATION
  Report Type: Report from Study
  Country: GB (occurrence: GB)
  Receive Date: 20170314
  Receipt Date: 20170314
  Transmission Date: 20170428
  Serious: Yes (Hospitalization)
  Sender: FDA-Public Use
  Company Number: GB-ROCHE-1904336

PATIENT
  Age: 30 Year
  Sex: Female
  Weight: 84 kg

DRUGS (1)
  1. TOCILIZUMAB [Suspect]
     Active Substance: TOCILIZUMAB
     Indication: RHEUMATOID ARTHRITIS
     Route: 065

REACTIONS (6)
  - Bronchitis [Unknown]
  - Mouth ulceration [Unknown]
  - Oligomenorrhoea [Unknown]
  - Decreased appetite [Unknown]
  - Tremor [Unknown]
  - Mental disorder [Unknown]

NARRATIVE: CASE EVENT DATE: 20160129
